FAERS Safety Report 24120174 (Version 1)
Quarter: 2024Q3

REPORT INFORMATION
  Report Type: Spontaneous
  Country: CN (occurrence: CN)
  Receive Date: 20240722
  Receipt Date: 20240722
  Transmission Date: 20241017
  Serious: Yes (Other)
  Sender: PFIZER
  Company Number: CN-PFIZER INC-PV202400094470

PATIENT
  Age: 7 Year
  Sex: Male
  Weight: 23.8 kg

DRUGS (8)
  1. CYTARABINE [Suspect]
     Active Substance: CYTARABINE
     Indication: Chemotherapy
     Dosage: 47 MG, 1X/DAY
     Route: 041
     Dates: start: 20240711, end: 20240715
  2. CYTARABINE [Suspect]
     Active Substance: CYTARABINE
     Indication: Neoplasm
  3. CYTARABINE [Suspect]
     Active Substance: CYTARABINE
     Indication: Neoplasm
     Dosage: 2.82 G, 1X/DAY
     Route: 041
     Dates: start: 20240712, end: 20240715
  4. CYTARABINE [Suspect]
     Active Substance: CYTARABINE
     Indication: Chemotherapy
  5. ETOPOSIDE [Concomitant]
     Active Substance: ETOPOSIDE
     Indication: Chemotherapy
     Dosage: 188 MG, 1X/DAY
     Route: 041
     Dates: start: 20240712, end: 20240715
  6. ETOPOSIDE [Concomitant]
     Active Substance: ETOPOSIDE
     Indication: Neoplasm
  7. VITAMIN B6 [Concomitant]
     Active Substance: PYRIDOXINE HYDROCHLORIDE
     Indication: Nausea
     Dosage: 0.1 G, 1X/DAY
     Route: 041
     Dates: start: 20240712, end: 20240717
  8. VITAMIN B6 [Concomitant]
     Active Substance: PYRIDOXINE HYDROCHLORIDE
     Indication: Vomiting

REACTIONS (5)
  - Pyrexia [Recovering/Resolving]
  - Rash [Recovering/Resolving]
  - Erythema [Recovering/Resolving]
  - Rash erythematous [Recovering/Resolving]
  - Pruritus [Recovering/Resolving]

NARRATIVE: CASE EVENT DATE: 20240712
